FAERS Safety Report 13644293 (Version 1)
Quarter: 2017Q2

REPORT INFORMATION
  Report Type: Spontaneous
  Country: US (occurrence: US)
  Receive Date: 20170612
  Receipt Date: 20170612
  Transmission Date: 20170830
  Serious: No
  Sender: FDA-Public Use
  Company Number: US-ROCHE-1072881

PATIENT
  Age: 53 Year
  Sex: Female

DRUGS (2)
  1. KLONOPIN [Suspect]
     Active Substance: CLONAZEPAM
     Indication: PANIC ATTACK
     Dosage: FREQUENCY: 1.5 EVERY 2 DAYS
     Route: 048
     Dates: start: 199301
  2. CENTRUM [Concomitant]
     Active Substance: VITAMINS
     Route: 048

REACTIONS (4)
  - Mitral valve prolapse [Unknown]
  - Dizziness [Not Recovered/Not Resolved]
  - Feeling abnormal [Not Recovered/Not Resolved]
  - Anxiety [Unknown]
